FAERS Safety Report 23559908 (Version 1)
Quarter: 2024Q1

REPORT INFORMATION
  Report Type: Spontaneous
  Country: SE (occurrence: None)
  Receive Date: 20240223
  Receipt Date: 20240223
  Transmission Date: 20240409
  Serious: Yes (Life-Threatening)
  Sender: FDA-Public Use
  Company Number: 2024A042545

PATIENT
  Age: 59 Year
  Sex: Male
  Weight: 90 kg

DRUGS (7)
  1. TEZSPIRE [Suspect]
     Active Substance: TEZEPELUMAB-EKKO
     Indication: Asthma
     Dosage: 1 INJECTION EVERY 4 WEEKS DOSE: FIRST DOSE
     Route: 058
     Dates: start: 20240122, end: 20240212
  2. ACETAMINOPHEN [Concomitant]
     Active Substance: ACETAMINOPHEN
     Dosage: 1-2 TABLETS AS NEEDED, MAX 8/DAY
     Route: 048
     Dates: start: 20220110
  3. BRICANYL [Concomitant]
     Active Substance: TERBUTALINE SULFATE
     Dosage: 1-2 INHALATIONS AS NEEDED, MAX 6 / DAY
     Route: 055
     Dates: start: 20220110
  4. MOMETASONE [Concomitant]
     Active Substance: MOMETASONE
     Dosage: 2 SPRAYS IF NEEDED100.0UG INTERMITTENT
     Route: 045
     Dates: start: 20220603
  5. SPIRIVA RESPIMAT [Concomitant]
     Active Substance: TIOTROPIUM BROMIDE
     Dosage: 2 INHALATIONS 1 TIME PER DAY
     Route: 055
     Dates: start: 20220615
  6. INNOVAIR [Concomitant]
     Active Substance: BECLOMETHASONE DIPROPIONATE\FORMOTEROL
     Dosage: 2 INHALATIONS 2 TIMES PER DAY
     Dates: start: 20220407
  7. SILDENAFIL [Concomitant]
     Active Substance: SILDENAFIL
     Dosage: 1 TABLET IF NEEDED.50.0MG INTERMITTENT
     Dates: start: 20171201

REACTIONS (3)
  - Pruritus [Unknown]
  - Blood lactate dehydrogenase increased [Not Recovered/Not Resolved]
  - Lip swelling [Recovered/Resolved]

NARRATIVE: CASE EVENT DATE: 20240208
